FAERS Safety Report 23776444 (Version 1)
Quarter: 2024Q2

REPORT INFORMATION
  Report Type: Other
  Country: DK (occurrence: None)
  Receive Date: 20240424
  Receipt Date: 20240424
  Transmission Date: 20240716
  Serious: Yes (Hospitalization, Other)
  Sender: FDA-Public Use
  Company Number: DK-ROCHE-3518556

PATIENT
  Age: 47 Year
  Sex: Female

DRUGS (10)
  1. TECENTRIQ [Suspect]
     Active Substance: ATEZOLIZUMAB
     Indication: Non-small cell lung cancer
     Dosage: ON 12/FEB/2024, RECEIVED THE LAST DOSE OF STUDY DRUG.
     Route: 041
     Dates: start: 20231206, end: 20240301
  2. MORPHINE [Concomitant]
     Active Substance: MORPHINE
     Dosage: 5 DROPS
  3. MICROLAX [Concomitant]
     Dosage: 1 DAILY
  4. POLYETHYLENE GLYCOLS [Concomitant]
     Active Substance: POLYETHYLENE GLYCOLS
     Dosage: 3350 MAX X 12 DAILY
  5. TECENTRIQ [Concomitant]
     Active Substance: ATEZOLIZUMAB
     Route: 041
  6. SERTRALINE [Concomitant]
     Active Substance: SERTRALINE HYDROCHLORIDE
  7. IBUPROFEN [Concomitant]
     Active Substance: IBUPROFEN
     Dosage: 400 MG PRN MAX X 3
  8. PANTOPRAZOLE [Concomitant]
     Active Substance: PANTOPRAZOLE
  9. ACETAMINOPHEN [Concomitant]
     Active Substance: ACETAMINOPHEN
     Dosage: 1 G X 3
  10. PREDNISOLONE [Concomitant]
     Active Substance: PREDNISOLONE

REACTIONS (5)
  - Pleural effusion [Recovered/Resolved]
  - Non-small cell lung cancer [Not Recovered/Not Resolved]
  - General physical health deterioration [Not Recovered/Not Resolved]
  - Non-small cell lung cancer [Unknown]
  - Dyspnoea [Unknown]

NARRATIVE: CASE EVENT DATE: 20240129
